FAERS Safety Report 5391185-1 (Version None)
Quarter: 2007Q3

REPORT INFORMATION
  Report Type: 
  Country: None (occurrence: None)
  Receive Date: 20070719
  Receipt Date: 20070712
  Transmission Date: 20080115
  Serious: Yes (Other)
  Sender: FDA-Public Use
  Company Number: DE-NOVOPROD-258139

PATIENT
  Sex: Male

DRUGS (2)
  1. NORDITROPIN NORDIFLEX [Suspect]
     Indication: GROWTH RETARDATION
     Dosage: .6 MG, QD
     Route: 058
     Dates: start: 20061010, end: 20061022
  2. NORDITROPIN NORDIFLEX [Suspect]
     Dosage: .6 MG, QD
     Route: 058

REACTIONS (1)
  - STEVENS-JOHNSON SYNDROME [None]
